FAERS Safety Report 6262744-9 (Version None)
Quarter: 2009Q3

REPORT INFORMATION
  Report Type: 
  Country: None (occurrence: None)
  Receive Date: 20090708
  Receipt Date: 20090701
  Transmission Date: 20100115
  Serious: Yes (Other)
  Sender: FDA-Public Use
  Company Number: 2009AL004361

PATIENT
  Sex: Male

DRUGS (1)
  1. DIGOXIN [Suspect]
     Dosage: PO
     Route: 048
     Dates: start: 20030101

REACTIONS (5)
  - BLOOD URINE PRESENT [None]
  - ECONOMIC PROBLEM [None]
  - HEART RATE IRREGULAR [None]
  - MULTIPLE INJURIES [None]
  - RENAL IMPAIRMENT [None]
